FAERS Safety Report 4578889-5 (Version None)
Quarter: 2005Q1

REPORT INFORMATION
  Report Type: 
  Country: None (occurrence: None)
  Receive Date: 20050211
  Receipt Date: 20050203
  Transmission Date: 20050727
  Serious: Yes (Hospitalization)
  Sender: FDA-Public Use
  Company Number: US-ABBOTT-05P-163-0289588-00

PATIENT
  Sex: Female
  Weight: 81.72 kg

DRUGS (21)
  1. SYNTHROID [Suspect]
     Indication: HYPOTHYROIDISM
     Route: 048
     Dates: start: 20030101, end: 20030101
  2. SYNTHROID [Suspect]
     Route: 048
     Dates: start: 20030101, end: 20031001
  3. SYNTHROID [Suspect]
     Route: 048
     Dates: start: 20031001, end: 20040301
  4. SYNTHROID [Suspect]
     Route: 048
     Dates: start: 20040301, end: 20040501
  5. SYNTHROID [Suspect]
     Route: 048
     Dates: start: 20040501, end: 20040601
  6. SYNTHROID [Suspect]
     Route: 048
     Dates: start: 20040601, end: 20040801
  7. SYNTHROID [Suspect]
     Route: 048
     Dates: start: 20040801, end: 20040901
  8. SYNTHROID [Suspect]
     Route: 048
     Dates: start: 20041001, end: 20041201
  9. SYNTHROID [Suspect]
     Route: 048
     Dates: start: 20041201
  10. METHADONE HCL [Concomitant]
     Indication: PAIN
     Route: 048
     Dates: start: 20021001, end: 20031001
  11. TRAMADOL HCL [Concomitant]
     Indication: PAIN
     Route: 048
     Dates: start: 20040101
  12. ATORVASTATIN [Concomitant]
     Indication: DRUG USE FOR UNKNOWN INDICATION
     Route: 048
     Dates: start: 20041201
  13. DIOVAN [Concomitant]
     Indication: BLOOD PRESSURE INCREASED
     Route: 048
     Dates: start: 20040101
  14. CLONAZEPAM [Concomitant]
     Indication: PANIC ATTACK
     Route: 048
  15. CYANOCOBALAMIN [Concomitant]
     Indication: ANAEMIA
     Route: 050
     Dates: start: 20040101
  16. VITAMIN B 100 [Concomitant]
     Indication: DRUG USE FOR UNKNOWN INDICATION
     Route: 048
  17. ASCORBIC ACID [Concomitant]
     Indication: DRUG USE FOR UNKNOWN INDICATION
     Route: 048
  18. FISH OIL [Concomitant]
     Indication: DRUG USE FOR UNKNOWN INDICATION
     Route: 048
  19. SELLIUM [Concomitant]
     Indication: DRUG USE FOR UNKNOWN INDICATION
     Route: 048
  20. MAGNESIUM CHLORIDE ANHYDROUS [Concomitant]
     Indication: DRUG USE FOR UNKNOWN INDICATION
     Route: 048
  21. ZINC [Concomitant]
     Indication: DRUG USE FOR UNKNOWN INDICATION
     Route: 048

REACTIONS (8)
  - CHEST PAIN [None]
  - FATIGUE [None]
  - HYPOTRICHOSIS [None]
  - NAIL DISORDER [None]
  - NAIL PITTING [None]
  - ONYCHORRHEXIS [None]
  - PALPITATIONS [None]
  - TACHYCARDIA [None]
